FAERS Safety Report 4730625-5 (Version None)
Quarter: 2005Q3

REPORT INFORMATION
  Report Type: 
  Country: None (occurrence: None)
  Receive Date: 20050801
  Receipt Date: 20031113
  Transmission Date: 20060218
  Serious: Yes (Hospitalization)
  Sender: FDA-Public Use
  Company Number: DE-SANOFI-SYNTHELABO-F01200301293

PATIENT
  Sex: Male

DRUGS (2)
  1. OXALIPLATIN [Suspect]
     Route: 042
     Dates: end: 20031031
  2. CAPECITABINE [Suspect]
     Dosage: 1000 MG/M2 TWICE A DAY FOR 14 DAYS, Q3W
     Route: 048
     Dates: end: 20031031

REACTIONS (2)
  - DYSPNOEA [None]
  - PULMONARY EMBOLISM [None]
